FAERS Safety Report 9625672 (Version 1)
Quarter: 2013Q4

REPORT INFORMATION
  Report Type: Spontaneous
  Country: US (occurrence: US)
  Receive Date: 20131016
  Receipt Date: 20131016
  Transmission Date: 20140711
  Serious: Yes (Hospitalization)
  Sender: FDA-Public Use
  Company Number: US-SA-2013SA100526

PATIENT
  Sex: Female

DRUGS (1)
  1. LANTUS [Suspect]
     Route: 065

REACTIONS (2)
  - Gastrointestinal haemorrhage [Unknown]
  - Drug administered at inappropriate site [Unknown]
